FAERS Safety Report 4933734-0 (Version None)
Quarter: 2006Q1

REPORT INFORMATION
  Report Type: 
  Country: None (occurrence: None)
  Receive Date: 20060306
  Receipt Date: 20060224
  Transmission Date: 20060701
  Serious: Yes (Other)
  Sender: FDA-Public Use
  Company Number: CA-AMGEN-US168123

PATIENT
  Sex: Male

DRUGS (11)
  1. ARANESP [Suspect]
     Indication: RENAL FAILURE CHRONIC
  2. PROAMATINE [Concomitant]
  3. ATIVAN [Concomitant]
  4. EMPRACET [Concomitant]
     Route: 048
  5. LOSEC [Concomitant]
  6. VITAMIN B-12 [Concomitant]
  7. DITROPAN [Concomitant]
  8. ATARAX [Concomitant]
  9. CALCIUM GLUCONATE [Concomitant]
  10. FLORINEF [Concomitant]
  11. SERAX [Concomitant]

REACTIONS (8)
  - ANAEMIA [None]
  - BLOOD ALBUMIN DECREASED [None]
  - CHROMOSOME ABNORMALITY [None]
  - LEUKAEMIA [None]
  - MYELODYSPLASTIC SYNDROME [None]
  - PANCYTOPENIA [None]
  - SERUM FERRITIN INCREASED [None]
  - VITAMIN B12 INCREASED [None]
